FAERS Safety Report 9792251 (Version 2)
Quarter: 2014Q1

REPORT INFORMATION
  Report Type: Spontaneous
  Country: JP (occurrence: JP)
  Receive Date: 20140102
  Receipt Date: 20140213
  Transmission Date: 20141002
  Serious: Yes (Other)
  Sender: FDA-Public Use
  Company Number: PHHY2013JP152990

PATIENT
  Age: 57 Year
  Sex: Female

DRUGS (5)
  1. ZOMETA [Suspect]
     Indication: METASTASES TO BONE
     Route: 041
  2. LAPATINIB [Concomitant]
     Indication: METASTASES TO BONE
  3. CAPECITABINE [Concomitant]
     Indication: METASTASES TO BONE
  4. RANMARK [Concomitant]
  5. FASLODEX [Concomitant]

REACTIONS (1)
  - Palmar-plantar erythrodysaesthesia syndrome [Unknown]
